FAERS Safety Report 21168062 (Version 1)
Quarter: 2022Q3

REPORT INFORMATION
  Report Type: Spontaneous
  Country: US (occurrence: US)
  Receive Date: 20220803
  Receipt Date: 20220803
  Transmission Date: 20221027
  Serious: No
  Sender: FDA-Public Use
  Company Number: US-BAUSCH-BL-2022-019168

PATIENT
  Age: 77 Year
  Sex: Female
  Weight: 72.640 kg

DRUGS (2)
  1. ALAWAY [Suspect]
     Active Substance: KETOTIFEN FUMARATE
     Indication: Eye pruritus
     Route: 047
     Dates: start: 20220724
  2. DEVICE [Suspect]
     Active Substance: DEVICE
     Indication: Eye pruritus
     Route: 047

REACTIONS (1)
  - Instillation site pain [Unknown]

NARRATIVE: CASE EVENT DATE: 20220701
